FAERS Safety Report 19423894 (Version 1)
Quarter: 2021Q2

REPORT INFORMATION
  Report Type: Spontaneous
  Country: US (occurrence: US)
  Receive Date: 20210616
  Receipt Date: 20210616
  Transmission Date: 20210717
  Serious: Yes (Hospitalization)
  Sender: FDA-Public Use
  Company Number: US-AMERICAN REGENT INC-2021001537

PATIENT
  Age: 37 Year
  Sex: Female
  Weight: 51.2 kg

DRUGS (4)
  1. MIRCERA [Suspect]
     Active Substance: METHOXY POLYETHYLENE GLYCOL-EPOETIN BETA
     Dosage: 150 MICROGRAM, SINGLE (INCREASED DOSE)
     Dates: start: 20210525, end: 20210525
  2. MIRCERA [Suspect]
     Active Substance: METHOXY POLYETHYLENE GLYCOL-EPOETIN BETA
     Indication: NEPHROGENIC ANAEMIA
     Dosage: UNK, SINGLE
     Dates: start: 20210506, end: 20210506
  3. VENOFER [Suspect]
     Active Substance: IRON SUCROSE
     Indication: IRON DEFICIENCY
     Dosage: 100 MG, 3 IN 1 WK
     Dates: start: 20210408
  4. VENOFER [Suspect]
     Active Substance: IRON SUCROSE
     Dosage: 11TH DOSE (100 MG, 3 IN 1 WK)
     Dates: start: 20210525

REACTIONS (1)
  - Drug hypersensitivity [Recovered/Resolved]

NARRATIVE: CASE EVENT DATE: 20210525
